FAERS Safety Report 4372714-3 (Version None)
Quarter: 2004Q2

REPORT INFORMATION
  Report Type: 
  Country: None (occurrence: None)
  Receive Date: 20040526
  Receipt Date: 20040513
  Transmission Date: 20050107
  Serious: Yes (Other)
  Sender: FDA-Public Use
  Company Number: 04-157-0768-1

PATIENT
  Age: 64 Year
  Sex: Female
  Weight: 76 kg

DRUGS (2)
  1. DAUNORUBICIN, UNKNOWN STRENGTH, BEN VENUE LABS [Suspect]
     Indication: ACUTE MYELOID LEUKAEMIA
     Dosage: 45MG/M2 IV DAYS 1, 3
     Route: 042
     Dates: start: 20040316
  2. REFER TO ATTACHMENT I (ELI LILLY # 0404102337). [Concomitant]

REACTIONS (1)
  - MYOCARDIAL INFARCTION [None]
